FAERS Safety Report 25757065 (Version 1)
Quarter: 2025Q3

REPORT INFORMATION
  Report Type: Spontaneous
  Country: BR (occurrence: BR)
  Receive Date: 20250903
  Receipt Date: 20250903
  Transmission Date: 20251020
  Serious: Yes (Death, Other)
  Sender: BRACCO
  Company Number: BR-BRACCO-2025BR05848

PATIENT
  Age: 56 Year

DRUGS (1)
  1. IOPAMIRON [Suspect]
     Active Substance: IOPAMIDOL
     Indication: Computerised tomogram
     Route: 042
     Dates: start: 20250820, end: 20250820

REACTIONS (3)
  - Cardio-respiratory arrest [Fatal]
  - Respiratory distress [Fatal]
  - Foaming at mouth [Fatal]

NARRATIVE: CASE EVENT DATE: 20250820
